FAERS Safety Report 8904523 (Version 1)
Quarter: 2012Q4

REPORT INFORMATION
  Report Type: 
  Country: US (occurrence: US)
  Receive Date: 20121113
  Receipt Date: 20121113
  Transmission Date: 20130627
  Serious: Yes (Other)
  Sender: FDA-Public Use
  Company Number: US-BAYER-2012-118046

PATIENT
  Age: 9 Month
  Sex: Male
  Weight: 12 kg

DRUGS (1)
  1. BAYER MUSCLE AND JOINT CREAM [Suspect]
     Dosage: 1 MFUL, once
     Route: 048
     Dates: start: 20121108

REACTIONS (5)
  - Dyspnoea [Recovered/Resolved]
  - Choking [Recovered/Resolved]
  - Accidental exposure to product by child [None]
  - Drooling [Recovered/Resolved]
  - Expired drug administered [None]
